FAERS Safety Report 13303908 (Version 1)
Quarter: 2017Q1

REPORT INFORMATION
  Report Type: Not Available
  Country: IN (occurrence: IN)
  Receive Date: 20170307
  Receipt Date: 20170307
  Transmission Date: 20170428
  Serious: Yes (Life-Threatening)
  Sender: FDA-Public Use
  Company Number: IN--2017-IN-000027

PATIENT
  Age: 42 Year
  Sex: Male

DRUGS (1)
  1. AMLODIPINE BESYLATE BRAND UNSPECIFIED (VIVIMED) [Suspect]
     Active Substance: AMLODIPINE BESYLATE
     Indication: HYPERTENSION
     Dosage: 5 MG BD

REACTIONS (4)
  - Anuria [None]
  - Hyperlactacidaemia [None]
  - Shock [None]
  - Overdose [None]
